FAERS Safety Report 6188719-6 (Version None)
Quarter: 2009Q2

REPORT INFORMATION
  Report Type: 
  Country: None (occurrence: None)
  Receive Date: 20090513
  Receipt Date: 20090501
  Transmission Date: 20091009
  Serious: Yes (Other)
  Sender: FDA-Public Use
  Company Number: BE-GILEAD-2009-0021759

PATIENT
  Age: 41 Year
  Sex: Female

DRUGS (4)
  1. VIREAD [Suspect]
     Indication: HIV INFECTION
     Route: 048
  2. INTELENCE [Concomitant]
     Route: 048
     Dates: start: 20070829
  3. ISENTRESS [Concomitant]
     Route: 048
  4. COMBIVIR [Concomitant]
     Route: 048

REACTIONS (1)
  - ABORTION SPONTANEOUS [None]
